FAERS Safety Report 8943906 (Version 1)
Quarter: 2012Q4

REPORT INFORMATION
  Report Type: 
  Country: DE (occurrence: DE)
  Receive Date: 20121204
  Receipt Date: 20121204
  Transmission Date: 20130627
  Serious: Yes (Life-Threatening, Hospitalization, Congenital Anomaly, Other)
  Sender: FDA-Public Use
  Company Number: DE-WATSON-2012-20732

PATIENT
  Sex: Female

DRUGS (1)
  1. FLUOXETINE HYDROCHLORIDE (UNKNOWN) [Suspect]
     Indication: DEPRESSION
     Dosage: UNK
     Route: 064
     Dates: start: 20110430, end: 20120202

REACTIONS (5)
  - Neonatal asphyxia [Recovered/Resolved with Sequelae]
  - Persistent foetal circulation [Recovered/Resolved]
  - Atelectasis neonatal [Recovered/Resolved]
  - Atrial septal defect [Unknown]
  - Patent ductus arteriosus [Recovered/Resolved]
